FAERS Safety Report 7499001-9 (Version None)
Quarter: 2011Q2

REPORT INFORMATION
  Report Type: 
  Country: None (occurrence: None)
  Receive Date: 20110524
  Receipt Date: 20091122
  Transmission Date: 20111010
  Serious: Yes (Other)
  Sender: FDA-Public Use
  Company Number: US-BAYER-200940307NA

PATIENT
  Age: 90 Year
  Sex: Female
  Weight: 47 kg

DRUGS (19)
  1. GLIPIZIDE [Concomitant]
     Dosage: 5 MG/ MORNING AND 10 MG/EVENING
     Route: 048
  2. DIOVAN [Concomitant]
     Dosage: 80 MG, QD
     Route: 048
  3. TRASYLOL [Suspect]
     Indication: CORONARY ARTERY BYPASS
     Dosage: LOADING DOSE OF 200 ML BOLUS
     Dates: start: 20060208, end: 20060208
  4. NITROFURANTOIN [Concomitant]
     Dosage: NOON
     Route: 048
  5. PLASMA [Concomitant]
     Dosage: UNK
     Dates: start: 20060209
  6. HEPARIN [Concomitant]
     Dosage: 30,000 UNITS
     Route: 042
     Dates: start: 20060208
  7. DILTIAZEM [Concomitant]
     Dosage: 180 MG, QD
     Route: 048
  8. TRIAMTERENE [Concomitant]
     Dosage: 70/50 MG/DAILY
     Route: 048
  9. COUMADIN [Concomitant]
     Dosage: 3.5 MG/EVERY MONDAY
     Route: 048
  10. WELLBUTRIN [Concomitant]
     Dosage: 150 MG, QD
     Route: 048
  11. ATENOLOL [Concomitant]
     Dosage: 25 MG, QD
     Route: 048
  12. LEVOTHYROXINE SODIUM [Concomitant]
     Dosage: 0.01 MG, QD
     Route: 048
  13. TRASYLOL [Suspect]
     Indication: AORTIC VALVE REPLACEMENT
     Dosage: 1 ML, UNK
     Route: 042
     Dates: start: 20060208, end: 20060208
  14. PRILOSEC [Concomitant]
     Dosage: 20 MG, BID
     Route: 048
  15. COUMADIN [Concomitant]
     Dosage: 2.5 MG/EVERY MONDAY
     Route: 048
  16. NITROGLYCERIN [Concomitant]
     Dosage: TITRATED
     Route: 042
     Dates: start: 20060208
  17. PROTAMINE SULFATE [Concomitant]
     Dosage: 250 MG
     Route: 042
     Dates: start: 20060208
  18. RED BLOOD CELLS [Concomitant]
     Dosage: 4 UNITS
     Dates: start: 20060209
  19. INSULIN [Concomitant]
     Dosage: TITRATED
     Route: 042
     Dates: start: 20060208

REACTIONS (12)
  - EMOTIONAL DISTRESS [None]
  - RENAL IMPAIRMENT [None]
  - RENAL FAILURE [None]
  - FEAR [None]
  - ANHEDONIA [None]
  - UNEVALUABLE EVENT [None]
  - PAIN [None]
  - PSYCHIATRIC SYMPTOM [None]
  - STRESS [None]
  - ANXIETY [None]
  - INJURY [None]
  - RENAL INJURY [None]
